FAERS Safety Report 25064628 (Version 2)
Quarter: 2025Q2

REPORT INFORMATION
  Report Type: Spontaneous
  Country: JP (occurrence: JP)
  Receive Date: 20250311
  Receipt Date: 20250404
  Transmission Date: 20250716
  Serious: No
  Sender: MERCK SHARP AND DOHME
  Company Number: JP-009507513-2262965

PATIENT
  Age: 78 Year
  Sex: Male

DRUGS (3)
  1. MOLNUPIRAVIR [Suspect]
     Active Substance: MOLNUPIRAVIR
     Route: 048
  2. NIRMATRELVIR [Concomitant]
     Active Substance: NIRMATRELVIR
     Indication: COVID-19
  3. RITONAVIR [Concomitant]
     Active Substance: RITONAVIR
     Indication: COVID-19

REACTIONS (1)
  - Product use in unapproved indication [Unknown]
